FAERS Safety Report 5268047-3 (Version None)
Quarter: 2007Q1

REPORT INFORMATION
  Report Type: 
  Country: None (occurrence: None)
  Receive Date: 20070319
  Receipt Date: 20070305
  Transmission Date: 20070707
  Serious: Yes (Disabling, Other)
  Sender: FDA-Public Use
  Company Number: PHBS2006JP08595

PATIENT
  Age: 5 Month
  Sex: Male
  Weight: 7 kg

DRUGS (2)
  1. MIYA-BM [Suspect]
     Route: 048
  2. ZADITEN [Suspect]
     Indication: PRURITUS
     Dosage: 1.5 MG/DAY
     Route: 048
     Dates: start: 20060601, end: 20060605

REACTIONS (9)
  - AGITATION [None]
  - AREFLEXIA [None]
  - DIARRHOEA [None]
  - ENCEPHALOPATHY [None]
  - GROWTH RETARDATION [None]
  - OVERDOSE [None]
  - PYREXIA [None]
  - SOMNOLENCE [None]
  - SPEECH DISORDER [None]
